FAERS Safety Report 10881993 (Version 2)
Quarter: 2015Q1

REPORT INFORMATION
  Report Type: Spontaneous
  Country: US (occurrence: US)
  Receive Date: 20150303
  Receipt Date: 20150312
  Transmission Date: 20150721
  Serious: No
  Sender: FDA-Public Use
  Company Number: US-AMGEN-USASP2015018955

PATIENT
  Age: 64 Year
  Sex: Female

DRUGS (1)
  1. ENBREL [Suspect]
     Active Substance: ETANERCEPT
     Indication: RHEUMATOID ARTHRITIS
     Dosage: 50 MG, QWK
     Route: 065
     Dates: start: 20140901

REACTIONS (9)
  - Decreased appetite [Recovered/Resolved]
  - Cough [Not Recovered/Not Resolved]
  - Sneezing [Not Recovered/Not Resolved]
  - Back pain [Not Recovered/Not Resolved]
  - Headache [Recovered/Resolved]
  - Gastrointestinal disorder [Recovered/Resolved]
  - Chills [Not Recovered/Not Resolved]
  - Nasal congestion [Not Recovered/Not Resolved]
  - Nasopharyngitis [Unknown]

NARRATIVE: CASE EVENT DATE: 201502
